FAERS Safety Report 6558050-5 (Version None)
Quarter: 2010Q1

REPORT INFORMATION
  Report Type: 
  Country: None (occurrence: None)
  Receive Date: 20100127
  Receipt Date: 20100127
  Transmission Date: 20100710
  Serious: Yes (Hospitalization, Disabling)
  Sender: FDA-Public Use
  Company Number: None

PATIENT
  Age: 39 Year
  Sex: Male
  Weight: 90.7194 kg

DRUGS (1)
  1. ENBREL [Suspect]
     Indication: PSORIASIS
     Dosage: SYRINGE INJECTION TWICE A WEEK SUBCUTANEOUS
     Route: 058
     Dates: start: 20021219, end: 20080508

REACTIONS (3)
  - DYSGRAPHIA [None]
  - MULTIPLE SCLEROSIS [None]
  - TREMOR [None]
